FAERS Safety Report 4892637-0 (Version None)
Quarter: 2006Q1

REPORT INFORMATION
  Report Type: 
  Country: None (occurrence: None)
  Receive Date: 20060125
  Receipt Date: 20060125
  Transmission Date: 20060701
  Serious: Yes (Other)
  Sender: FDA-Public Use
  Company Number: None

PATIENT
  Age: 80 Year
  Sex: Female

DRUGS (1)
  1. VERTEPROFIN [Suspect]

REACTIONS (3)
  - BURNS SECOND DEGREE [None]
  - PAIN [None]
  - TREATMENT NONCOMPLIANCE [None]
